FAERS Safety Report 5614725-3 (Version None)
Quarter: 2008Q1

REPORT INFORMATION
  Report Type: 
  Country: None (occurrence: None)
  Receive Date: 20080201
  Receipt Date: 20080118
  Transmission Date: 20080703
  Serious: Yes (Other)
  Sender: FDA-Public Use
  Company Number: US-1165005

PATIENT
  Sex: 0

DRUGS (1)
  1. BSS [Suspect]
     Indication: EYE LASER SURGERY
     Dosage: 15 ML INTRAOCULAR
     Route: 031
     Dates: start: 20080110, end: 20080110

REACTIONS (4)
  - EYE PAIN [None]
  - KERATOPATHY [None]
  - POST PROCEDURAL COMPLICATION [None]
  - VISION BLURRED [None]
